FAERS Safety Report 4518200-9 (Version None)
Quarter: 2004Q4

REPORT INFORMATION
  Report Type: 
  Country: None (occurrence: None)
  Receive Date: 20041130
  Receipt Date: 20041116
  Transmission Date: 20050328
  Serious: Yes (Other)
  Sender: FDA-Public Use
  Company Number: USA040977883

PATIENT
  Age: 73 Year
  Sex: Female
  Weight: 61 kg

DRUGS (14)
  1. FORTEO [Suspect]
     Indication: OSTEOPOROSIS
     Dosage: 20 UG/DAY
     Dates: start: 20041114
  2. CALCIUM CARBONATE [Concomitant]
  3. VITAMIN D [Concomitant]
  4. ACCUPRIL [Concomitant]
  5. NORVASC [Concomitant]
  6. NITROGLYCERIN [Concomitant]
  7. SYNTHROID [Concomitant]
  8. HYDRALAZINE [Concomitant]
  9. MIRTAZAPINE [Concomitant]
  10. CLORAZEPATE DIPOTASSIUM [Concomitant]
  11. GABAPENTIN [Concomitant]
  12. ZOLOFT [Concomitant]
  13. COLESTID [Concomitant]
  14. JUICE PLUS (HOMEOPATHIC AGENT) [Concomitant]

REACTIONS (16)
  - CYSTITIS [None]
  - DECREASED ACTIVITY [None]
  - EYE SWELLING [None]
  - FEELING ABNORMAL [None]
  - FREQUENT BOWEL MOVEMENTS [None]
  - INJECTION SITE BURNING [None]
  - INJECTION SITE ERYTHEMA [None]
  - KIDNEY INFECTION [None]
  - MARKEDLY REDUCED DIETARY INTAKE [None]
  - MEDICAL DEVICE COMPLICATION [None]
  - MEDICATION ERROR [None]
  - NAUSEA [None]
  - OVERDOSE [None]
  - PHARMACEUTICAL PRODUCT COMPLAINT [None]
  - SKIN CANCER [None]
  - STOMACH DISCOMFORT [None]
